FAERS Safety Report 8485023-8 (Version None)
Quarter: 2012Q3

REPORT INFORMATION
  Report Type: 
  Country: None (occurrence: None)
  Receive Date: 20120703
  Receipt Date: 20120626
  Transmission Date: 20120928
  Serious: Yes (Death)
  Sender: FDA-Public Use
  Company Number: JP-GE HEALTHCARE MEDICAL DIAGNOSTICS-MSTR-NO-1206S-0041

PATIENT
  Sex: Male
  Weight: 45 kg

DRUGS (10)
  1. LANSOPRAZOLE [Concomitant]
  2. LEUPROLIDE ACETATE [Concomitant]
  3. MUCOSTA [Concomitant]
  4. IOXOPROFEN SODIUM HYDRATE [Concomitant]
  5. OXYCONTIN [Concomitant]
  6. PROCHLORPERAZINE [Concomitant]
  7. CASODEX [Concomitant]
  8. METASTRON [Suspect]
     Indication: METASTATIC PAIN
     Route: 042
     Dates: start: 20120406, end: 20120406
  9. ETODOLAC [Concomitant]
  10. MAGMITT [Concomitant]

REACTIONS (1)
  - DEATH [None]
